FAERS Safety Report 4491899-1 (Version None)
Quarter: 2004Q4

REPORT INFORMATION
  Report Type: 
  Country: None (occurrence: None)
  Receive Date: 20041029
  Receipt Date: 20041029
  Transmission Date: 20050328
  Serious: Yes (Hospitalization)
  Sender: FDA-Public Use
  Company Number: None

PATIENT
  Age: 78 Year
  Sex: Female

DRUGS (8)
  1. LITHIUM [Suspect]
     Dosage: 600 MG   AT BEDTIME   ORAL
     Route: 048
  2. ATENOLOL [Concomitant]
  3. BENAZEPRIL HCL [Concomitant]
  4. ASIRIN [Concomitant]
  5. PREMARIN [Concomitant]
  6. MEDROXYPROGESTERONE [Concomitant]
  7. DUCOSATE [Concomitant]
  8. ACETAMINOPHEN [Concomitant]

REACTIONS (5)
  - ANTIPSYCHOTIC DRUG LEVEL INCREASED [None]
  - ATAXIA [None]
  - BELLIGERENCE [None]
  - DISORIENTATION [None]
  - DRUG INTERACTION [None]
